FAERS Safety Report 5810134-2 (Version None)
Quarter: 2008Q3

REPORT INFORMATION
  Report Type: 
  Country: None (occurrence: None)
  Receive Date: 20080715
  Receipt Date: 20070717
  Transmission Date: 20090109
  Serious: No
  Sender: FDA-Public Use
  Company Number: A0664574A

PATIENT
  Age: 44 Year
  Sex: Female

DRUGS (3)
  1. IMITREX [Suspect]
     Indication: MIGRAINE
     Dosage: 100MG AS REQUIRED
     Route: 048
     Dates: start: 20060101
  2. PAXIL [Suspect]
     Dosage: 20MG AT NIGHT
     Route: 048
     Dates: start: 20070524
  3. XALATAN [Concomitant]

REACTIONS (8)
  - DRUG INEFFECTIVE [None]
  - FEELING OF RELAXATION [None]
  - HEAD DISCOMFORT [None]
  - HYPERHIDROSIS [None]
  - INSOMNIA [None]
  - NAUSEA [None]
  - SOMNOLENCE [None]
  - THERAPEUTIC RESPONSE UNEXPECTED [None]
